FAERS Safety Report 6151649-X (Version None)
Quarter: 2009Q2

REPORT INFORMATION
  Report Type: 
  Country: None (occurrence: None)
  Receive Date: 20090410
  Receipt Date: 20090330
  Transmission Date: 20091009
  Serious: Yes (Hospitalization)
  Sender: FDA-Public Use
  Company Number: ES-WYE-H08847109

PATIENT
  Age: 51 Year
  Sex: Male

DRUGS (1)
  1. TRANGOREX [Suspect]
     Indication: PROPHYLAXIS
     Route: 048
     Dates: start: 20000602, end: 20070914

REACTIONS (3)
  - HYPERTHYROIDISM [None]
  - MENINGITIS BACTERIAL [None]
  - VOMITING [None]
